FAERS Safety Report 5611821-1 (Version None)
Quarter: 2008Q1

REPORT INFORMATION
  Report Type: 
  Country: None (occurrence: None)
  Receive Date: 20080204
  Receipt Date: 20080123
  Transmission Date: 20080703
  Serious: Yes (Hospitalization)
  Sender: FDA-Public Use
  Company Number: LB-JNJFOC-20080105602

PATIENT
  Age: 36 Year
  Sex: Female

DRUGS (11)
  1. ASPIRIN [Suspect]
     Indication: DRUG USE FOR UNKNOWN INDICATION
  2. DEFERIPRONE [Concomitant]
  3. AMOXICILLIN + CLAVULANATE POTASSIUM [Concomitant]
     Indication: PYREXIA
  4. AMOXICILLIN + CLAVULANATE POTASSIUM [Concomitant]
     Indication: TONSILLITIS
  5. ALLOPURINOL [Concomitant]
  6. FOLIC ACID [Concomitant]
  7. CALCIUM GLUCONATE [Concomitant]
  8. VITAMIN D [Concomitant]
  9. CEFEPIME [Concomitant]
  10. TEICOPLANIN [Concomitant]
  11. NEUPOGEN [Concomitant]

REACTIONS (1)
  - HAEMORRHAGIC STROKE [None]
